FAERS Safety Report 6094346-1 (Version None)
Quarter: 2009Q1

REPORT INFORMATION
  Report Type: 
  Country: None (occurrence: None)
  Receive Date: 20090224
  Receipt Date: 20090217
  Transmission Date: 20090719
  Serious: Yes (Hospitalization, Congenital Anomaly)
  Sender: FDA-Public Use
  Company Number: 2009-191821-NL

PATIENT
  Sex: Male

DRUGS (3)
  1. MIRTAZAPINE [Suspect]
  2. CYMBALTA [Suspect]
  3. LAMOTRIGINE [Suspect]

REACTIONS (7)
  - CAESAREAN SECTION [None]
  - DRUG WITHDRAWAL SYNDROME NEONATAL [None]
  - MATERNAL DRUGS AFFECTING FOETUS [None]
  - NEONATAL HYPOTENSION [None]
  - NEONATAL RESPIRATORY DISTRESS SYNDROME [None]
  - NEONATAL TACHYPNOEA [None]
  - TREMOR NEONATAL [None]
